FAERS Safety Report 12427889 (Version 1)
Quarter: 2016Q2

REPORT INFORMATION
  Report Type: Spontaneous
  Country: US (occurrence: US)
  Receive Date: 20160602
  Receipt Date: 20160602
  Transmission Date: 20160815
  Serious: No
  Sender: FDA-Public Use
  Company Number: US-NOVEN PHARMACEUTICALS, INC.-US2015000408

PATIENT
  Age: 12 Year
  Sex: Male

DRUGS (6)
  1. ABILIFY [Concomitant]
     Active Substance: ARIPIPRAZOLE
     Indication: AFFECTIVE DISORDER
  2. INTUNIV [Concomitant]
     Active Substance: GUANFACINE HYDROCHLORIDE
     Indication: DYSKINESIA
  3. INTUNIV [Concomitant]
     Active Substance: GUANFACINE HYDROCHLORIDE
     Indication: ATTENTION DEFICIT/HYPERACTIVITY DISORDER
     Dosage: 4 MG, UNK
  4. ABILIFY [Concomitant]
     Active Substance: ARIPIPRAZOLE
     Indication: ATTENTION DEFICIT/HYPERACTIVITY DISORDER
     Dosage: 6 MG, UNK
  5. DAYTRANA [Suspect]
     Active Substance: METHYLPHENIDATE
     Indication: ATTENTION DEFICIT/HYPERACTIVITY DISORDER
     Dosage: 15 MG, 9 HOURS DAILY
     Route: 062
     Dates: start: 20150606
  6. ABILIFY [Concomitant]
     Active Substance: ARIPIPRAZOLE
     Indication: ANGER

REACTIONS (9)
  - Application site erythema [Unknown]
  - Product quality issue [Unknown]
  - Product adhesion issue [Unknown]
  - Wrong technique in product usage process [Unknown]
  - Drug prescribing error [Unknown]
  - Incorrect product storage [Unknown]
  - Drug dose omission [Unknown]
  - Drug ineffective [Unknown]
  - Drug administration error [Unknown]

NARRATIVE: CASE EVENT DATE: 2015
